FAERS Safety Report 25770279 (Version 1)
Quarter: 2025Q3

REPORT INFORMATION
  Report Type: Spontaneous
  Country: US (occurrence: US)
  Receive Date: 20250907
  Receipt Date: 20250907
  Transmission Date: 20251020
  Serious: Yes (Death, Other)
  Sender: AMGEN
  Company Number: US-AMGEN-USASP2025173716

PATIENT
  Age: 34 Year
  Sex: Male

DRUGS (4)
  1. RITUXIMAB [Suspect]
     Active Substance: RITUXIMAB
     Indication: Interstitial lung disease
     Route: 065
  2. MYCOPHENOLATE MOFETIL [Concomitant]
     Active Substance: MYCOPHENOLATE MOFETIL
     Indication: Dermatomyositis
     Route: 065
  3. HUMAN IMMUNOGLOBULIN G [Concomitant]
     Active Substance: HUMAN IMMUNOGLOBULIN G
     Indication: Interstitial lung disease
     Route: 040
  4. TACROLIMUS [Concomitant]
     Active Substance: TACROLIMUS
     Indication: Interstitial lung disease
     Route: 065

REACTIONS (3)
  - Death [Fatal]
  - Interstitial lung disease [Unknown]
  - Off label use [Unknown]
